FAERS Safety Report 6181688-4 (Version None)
Quarter: 2009Q2

REPORT INFORMATION
  Report Type: 
  Country: None (occurrence: None)
  Receive Date: 20090506
  Receipt Date: 20090316
  Transmission Date: 20091009
  Serious: No
  Sender: FDA-Public Use
  Company Number: US-BAYER-200910848BCC

PATIENT
  Age: 46 Year
  Sex: Male
  Weight: 113 kg

DRUGS (4)
  1. ALEVE (CAPLET) [Suspect]
     Indication: MYALGIA
     Dosage: TOTAL DAILY DOSE: 440 MG  UNIT DOSE: 220 MG
     Route: 048
     Dates: start: 20090312
  2. ALEVE (CAPLET) [Suspect]
     Route: 065
     Dates: start: 20071101, end: 20071101
  3. SYNTHROID [Concomitant]
     Indication: HYPOTHYROIDISM
     Route: 065
  4. TOPAMAX [Concomitant]

REACTIONS (4)
  - BLISTER [None]
  - PAIN IN EXTREMITY [None]
  - RASH [None]
  - RASH ERYTHEMATOUS [None]
